FAERS Safety Report 4571558-7 (Version None)
Quarter: 2005Q1

REPORT INFORMATION
  Report Type: 
  Country: None (occurrence: None)
  Receive Date: 20050207
  Receipt Date: 20050126
  Transmission Date: 20050727
  Serious: Yes (Hospitalization, Disabling)
  Sender: FDA-Public Use
  Company Number: GB-BRISTOL-MYERS SQUIBB COMPANY-12838165

PATIENT
  Age: 72 Year
  Sex: Female
  Weight: 70 kg

DRUGS (11)
  1. ABILIFY [Suspect]
     Indication: HALLUCINATION
     Dosage: 10-15 MG DAILY
     Route: 048
     Dates: start: 20041201, end: 20050112
  2. EXELON [Concomitant]
     Indication: MEMORY IMPAIRMENT
     Route: 048
     Dates: start: 20041101
  3. ATORVASTATIN [Concomitant]
  4. ARIMIDEX [Concomitant]
  5. SLOZEM [Concomitant]
  6. GTN PATCH [Concomitant]
     Route: 062
  7. THYROXINE [Concomitant]
  8. ATENOLOL [Concomitant]
  9. IKOREL [Concomitant]
  10. ASPIRIN [Concomitant]
  11. CALCICHEW [Concomitant]

REACTIONS (3)
  - FALL [None]
  - SYNCOPE [None]
  - UPPER LIMB FRACTURE [None]
